FAERS Safety Report 7680519-0 (Version None)
Quarter: 2011Q3

REPORT INFORMATION
  Report Type: 
  Country: None (occurrence: None)
  Receive Date: 20110812
  Receipt Date: 20110801
  Transmission Date: 20111222
  Serious: Yes (Hospitalization)
  Sender: FDA-Public Use
  Company Number: US-JNJFOC-20110308205

PATIENT

DRUGS (4)
  1. REMICADE [Suspect]
     Dosage: TOTAL 3 INFUSIONS
     Route: 042
     Dates: start: 20050901
  2. REMICADE [Suspect]
     Indication: COLITIS
     Route: 042
     Dates: start: 20040402
  3. REMICADE [Suspect]
     Dosage: TOTAL 3 INFUSIONS
     Route: 042
     Dates: start: 20050901
  4. REMICADE [Suspect]
     Indication: COLITIS ULCERATIVE
     Route: 042
     Dates: start: 20040402

REACTIONS (2)
  - DIARRHOEA [None]
  - ARTHRITIS [None]
